FAERS Safety Report 16318188 (Version 3)
Quarter: 2019Q2

REPORT INFORMATION
  Report Type: Spontaneous
  Country: ZA (occurrence: ZA)
  Receive Date: 20190516
  Receipt Date: 20190529
  Transmission Date: 20190711
  Serious: Yes (Hospitalization, Other)
  Sender: FDA-Public Use
  Company Number: ZA-009507513-1905ZAF006279

PATIENT
  Age: 17 Year
  Sex: Male

DRUGS (6)
  1. ILOTYCIN [Concomitant]
     Active Substance: ERYTHROMYCIN
     Dosage: UNK
     Route: 062
  2. ILOSONE [Concomitant]
     Active Substance: ERYTHROMYCIN ESTOLATE
     Dosage: UNK
  3. LORIEN [Concomitant]
     Active Substance: FLUOXETINE HYDROCHLORIDE
     Dosage: 20 MILLIGRAM, QD
     Route: 048
  4. CELESTONE SOLUSPAN [Suspect]
     Active Substance: BETAMETHASONE ACETATE\BETAMETHASONE SODIUM PHOSPHATE
     Indication: HYPERSENSITIVITY
     Dosage: 2 MILLILITER, 1 X
     Route: 030
     Dates: start: 20190501
  5. ROACCUTANE [Concomitant]
     Active Substance: ISOTRETINOIN
     Dosage: UNK
  6. PHENERGAN [Concomitant]
     Active Substance: PROMETHAZINE HYDROCHLORIDE
     Indication: SEDATION
     Dosage: UNK

REACTIONS (7)
  - Psychotic disorder [Unknown]
  - Cortisol abnormal [Unknown]
  - Allergy test positive [Unknown]
  - Epstein-Barr virus test positive [Unknown]
  - CSF pressure increased [Unknown]
  - Blood alkaline phosphatase increased [Unknown]
  - Blood immunoglobulin E increased [Unknown]

NARRATIVE: CASE EVENT DATE: 20190501
